FAERS Safety Report 8150062-3 (Version None)
Quarter: 2012Q1

REPORT INFORMATION
  Report Type: 
  Country: None (occurrence: None)
  Receive Date: 20120219
  Receipt Date: 20120208
  Transmission Date: 20120608
  Serious: Yes (Hospitalization)
  Sender: FDA-Public Use
  Company Number: JP-BRISTOL-MYERS SQUIBB COMPANY-16395691

PATIENT
  Age: 63 Year
  Sex: Male

DRUGS (1)
  1. ORENCIA [Suspect]
     Indication: RHEUMATOID ARTHRITIS
     Dosage: POSTPONED FOR 2 WEEKS AND CONTINUED
     Route: 041
     Dates: start: 20111116

REACTIONS (3)
  - JOINT INSTABILITY [None]
  - PYELONEPHRITIS [None]
  - GALLBLADDER EMPYEMA [None]
